FAERS Safety Report 16125381 (Version 2)
Quarter: 2019Q2

REPORT INFORMATION
  Report Type: Spontaneous
  Country: IL (occurrence: IL)
  Receive Date: 20190327
  Receipt Date: 20190510
  Transmission Date: 20190711
  Serious: Yes (Hospitalization)
  Sender: FDA-Public Use
  Company Number: IL-BAXTER-2019BAX005877

PATIENT
  Age: 2 Year
  Sex: Female

DRUGS (12)
  1. SODIUM GLYCEROPHOSPHATE [Suspect]
     Active Substance: SODIUM GLYCEROPHOSPHATE
     Indication: PARENTERAL NUTRITION
     Dosage: FORMULATION: TNH0137741
     Route: 065
     Dates: start: 20190313, end: 201903
  2. VITALIPID N INFANT [Suspect]
     Active Substance: .ALPHA.-TOCOPHEROL, DL-\ERGOCALCIFEROL\PHYTONADIONE\VITAMIN A PALMITATE
     Indication: PARENTERAL NUTRITION
     Dosage: FORMULATION: TNH0137750
     Route: 065
     Dates: start: 20190313, end: 201903
  3. CALCIUM GLUCONATE. [Suspect]
     Active Substance: CALCIUM GLUCONATE
     Indication: PARENTERAL NUTRITION
     Dosage: FORMULATION: TNH0137741
     Route: 065
     Dates: start: 20190313, end: 201903
  4. GLUCOSE 50% W/V CONCENTRATE FOR SOLUTION FOR INFUSION [Suspect]
     Active Substance: DEXTROSE
     Indication: PARENTERAL NUTRITION
     Dosage: FORMULATION: TNH0137741
     Route: 065
     Dates: start: 20190313, end: 201903
  5. MAGNESIUM SULFATE. [Suspect]
     Active Substance: MAGNESIUM SULFATE
     Indication: PARENTERAL NUTRITION
     Dosage: FORMULATION: TNH0137741
     Route: 065
     Dates: start: 20190313, end: 201903
  6. PRIM?NE 10% [Suspect]
     Active Substance: AMINO ACIDS
     Indication: PARENTERAL NUTRITION
     Dosage: FORMULATION: TNH0137741
     Route: 065
     Dates: start: 20190313, end: 201903
  7. PEDITRACE [Suspect]
     Active Substance: CUPRIC CHLORIDE\MANGANESE CHLORIDE\POTASSIUM IODIDE\SODIUM FLUORIDE\SODIUM SELENITE\ZINC CHLORIDE
     Indication: PARENTERAL NUTRITION
     Dosage: FORMULATION: TNH0137741
     Route: 065
     Dates: start: 20190313, end: 201903
  8. SOLUVIT [Suspect]
     Active Substance: VITAMINS
     Indication: PARENTERAL NUTRITION
     Dosage: FORMULATION: TNH0137741
     Route: 065
     Dates: start: 20190313, end: 201903
  9. SMOFLIPID [Suspect]
     Active Substance: FISH OIL\MEDIUM-CHAIN TRIGLYCERIDES\OLIVE OIL\SOYBEAN OIL
     Indication: PARENTERAL NUTRITION
     Dosage: FORMULATION: TNH0137750
     Route: 065
     Dates: start: 20190313, end: 201903
  10. POTASS-CHLORIDE [Suspect]
     Active Substance: POTASSIUM CHLORIDE
     Indication: PARENTERAL NUTRITION
     Dosage: FORMULATION: TNH0137741
     Route: 065
     Dates: start: 20190313, end: 201903
  11. STERILE WATER FOR INJECTION [Suspect]
     Active Substance: WATER
     Indication: PARENTERAL NUTRITION
     Dosage: FORMULATION: TNH0137741
     Route: 065
     Dates: start: 20190313, end: 201903
  12. SODIUM CHLOR [Suspect]
     Active Substance: SODIUM CHLORIDE
     Indication: PARENTERAL NUTRITION
     Dosage: FORMULATION: TNH0137741
     Route: 065
     Dates: start: 20190313, end: 201903

REACTIONS (4)
  - Asthenia [Recovered/Resolved]
  - Escherichia bacteraemia [Recovered/Resolved]
  - Micrococcus infection [Recovered/Resolved]
  - Fatigue [Recovered/Resolved]

NARRATIVE: CASE EVENT DATE: 201903
